FAERS Safety Report 5062124-8 (Version None)
Quarter: 2006Q3

REPORT INFORMATION
  Report Type: 
  Country: None (occurrence: None)
  Receive Date: 20060703
  Receipt Date: 20051005
  Transmission Date: 20061208
  Serious: No
  Sender: FDA-Public Use
  Company Number: 2005S1009936

PATIENT
  Age: 47 Year
  Sex: Male

DRUGS (12)
  1. CLOZAPINE [Suspect]
     Dosage: SEE IMAGE
     Route: 048
     Dates: start: 20041101
  2. GEMFIBROZIL [Concomitant]
  3. ATORVASTATIN CALCIUM [Concomitant]
  4. ZIPRASIDONE HCL [Concomitant]
  5. VALPROATE SODIUM [Concomitant]
  6. PANTOPRAZOLE SODIUM [Concomitant]
  7. METOPROLOL TARTRATE [Concomitant]
  8. GLYCERYL TRINITRATE [Concomitant]
  9. CLEMASTINE [Concomitant]
  10. FERROUS SULFATE TAB [Concomitant]
  11. CLOPIDOGREL BISULFATE [Concomitant]
  12. CARBAMAZEPINE [Concomitant]

REACTIONS (1)
  - GRANULOCYTOPENIA [None]
